FAERS Safety Report 10226938 (Version 2)
Quarter: 2014Q2

REPORT INFORMATION
  Report Type: Spontaneous
  Country: US (occurrence: US)
  Receive Date: 20140610
  Receipt Date: 20140610
  Transmission Date: 20141212
  Serious: No
  Sender: FDA-Public Use
  Company Number: US-TEVA-469618USA

PATIENT
  Age: 15 Year
  Sex: Female

DRUGS (1)
  1. QUARTETTE [Suspect]
     Indication: CONTRACEPTION
     Dates: start: 20140304

REACTIONS (1)
  - Pain in extremity [Recovering/Resolving]
